FAERS Safety Report 5939766-8 (Version None)
Quarter: 2008Q4

REPORT INFORMATION
  Report Type: 
  Country: None (occurrence: None)
  Receive Date: 20081031
  Receipt Date: 20081031
  Transmission Date: 20090506
  Serious: Yes (Hospitalization)
  Sender: FDA-Public Use
  Company Number: None

PATIENT
  Age: 57 Year
  Sex: Female
  Weight: 75.7507 kg

DRUGS (3)
  1. TAXOTERE [Suspect]
     Indication: BREAST CANCER
     Dosage: 144 MG/14.4ML IN 250ML OF D5W INFUSED OVER 60 MIN IV
     Route: 042
     Dates: start: 20080916, end: 20080916
  2. TAXOTERE [Suspect]
     Indication: CHEMOTHERAPY
     Dosage: 144 MG/14.4ML IN 250ML OF D5W INFUSED OVER 60 MIN IV
     Route: 042
     Dates: start: 20080916, end: 20080916
  3. TAXOTERE [Suspect]

REACTIONS (6)
  - ASTHENIA [None]
  - CELLULITIS [None]
  - FATIGUE [None]
  - INFUSION SITE EXTRAVASATION [None]
  - NO THERAPEUTIC RESPONSE [None]
  - PYREXIA [None]
